FAERS Safety Report 4303307-1 (Version None)
Quarter: 2004Q1

REPORT INFORMATION
  Report Type: 
  Country: None (occurrence: None)
  Receive Date: 20040223
  Receipt Date: 20040202
  Transmission Date: 20041129
  Serious: Yes (Hospitalization, Other)
  Sender: FDA-Public Use
  Company Number: 2003122271

PATIENT
  Age: 80 Year
  Sex: Male
  Weight: 102.0593 kg

DRUGS (10)
  1. LIPITOR [Suspect]
     Indication: BLOOD CHOLESTEROL INCREASED
     Dosage: 20 MG DAILY, ORAL
     Route: 048
  2. PREDNISONE [Suspect]
     Indication: ILL-DEFINED DISORDER
     Dosage: 10 MG DAILY, ORAL
     Route: 048
  3. DIURETICS [Suspect]
     Indication: CARDIOMEGALY
     Dosage: ORAL
     Route: 048
     Dates: start: 20031001
  4. DICYCLOVERINE (DICYCLOVERINE) [Concomitant]
  5. TERAZOSIN (TERAZOSIN) [Concomitant]
  6. CHLORPROMAZINE [Concomitant]
  7. PARACETAMOL (PARACETAMOL) [Concomitant]
  8. TAMSULOSIN (TAMSULOSIN) [Concomitant]
  9. BECLOMETHASONE DIPROPIONATE [Concomitant]
  10. FLUNISOLIDE (FLUNISOLIDE) [Concomitant]

REACTIONS (41)
  - ABDOMINAL PAIN LOWER [None]
  - ARRHYTHMIA [None]
  - ARTHRALGIA [None]
  - ARTHROPATHY [None]
  - ASTHENIA [None]
  - BACK PAIN [None]
  - BLOOD CHOLESTEROL INCREASED [None]
  - BLOOD TESTOSTERONE DECREASED [None]
  - BLOOD TRIGLYCERIDES INCREASED [None]
  - BLOOD UREA INCREASED [None]
  - CARDIOMEGALY [None]
  - DYSPEPSIA [None]
  - ELECTROCARDIOGRAM ABNORMAL [None]
  - EXCORIATION [None]
  - EXOSTOSIS [None]
  - FEELING ABNORMAL [None]
  - FIBROMYALGIA [None]
  - HEART RATE DECREASED [None]
  - INTERMITTENT CLAUDICATION [None]
  - INTERVERTEBRAL DISC DEGENERATION [None]
  - INTERVERTEBRAL DISC SPACE NARROWING [None]
  - JOINT EFFUSION [None]
  - JOINT RANGE OF MOTION DECREASED [None]
  - MUSCULOSKELETAL DISORDER [None]
  - MUSCULOSKELETAL STIFFNESS [None]
  - MYALGIA [None]
  - PAIN IN EXTREMITY [None]
  - PH URINE INCREASED [None]
  - PHOTOSENSITIVITY REACTION [None]
  - PROSTATE CANCER [None]
  - PULSE ABSENT [None]
  - ROTATOR CUFF REPAIR [None]
  - SACRAL PAIN [None]
  - SCAR [None]
  - SLEEP APNOEA SYNDROME [None]
  - SLEEP DISORDER [None]
  - SPINAL CORD DISORDER [None]
  - SPINAL FUSION ACQUIRED [None]
  - VENTRICULAR EXTRASYSTOLES [None]
  - WEIGHT DECREASED [None]
  - WEIGHT LOSS POOR [None]
